FAERS Safety Report 6734382-2 (Version None)
Quarter: 2010Q2

REPORT INFORMATION
  Report Type: 
  Country: None (occurrence: None)
  Receive Date: 20100513
  Receipt Date: 20090924
  Transmission Date: 20101027
  Serious: Yes (Hospitalization)
  Sender: FDA-Public Use
  Company Number: 2009S1000422

PATIENT
  Age: 60 Year
  Sex: Male

DRUGS (2)
  1. CUBICIN [Suspect]
     Indication: OSTEOMYELITIS
  2. CUBICIN [Suspect]
     Indication: STAPHYLOCOCCAL INFECTION

REACTIONS (1)
  - EOSINOPHILIC PNEUMONIA [None]
